FAERS Safety Report 9358593 (Version 1)
Quarter: 2013Q2

REPORT INFORMATION
  Report Type: Spontaneous
  Country: TW (occurrence: TW)
  Receive Date: 20130620
  Receipt Date: 20130620
  Transmission Date: 20140414
  Serious: Yes (Hospitalization, Other)
  Sender: FDA-Public Use
  Company Number: PHHY2013TW060628

PATIENT
  Age: 65 Year
  Sex: Male

DRUGS (3)
  1. RISPERIDONE [Suspect]
     Dosage: 3 MG, DAILY
  2. BIPERIDEN [Suspect]
     Dosage: 2.5 MG
     Route: 030
  3. OXCARBAZEPINE [Concomitant]
     Dosage: 600 MG, DAILY

REACTIONS (15)
  - Tardive dyskinesia [Recovered/Resolved]
  - Throat tightness [Recovered/Resolved]
  - Dysphonia [Recovered/Resolved]
  - Dyspnoea [Recovered/Resolved]
  - Dyskinesia [Recovered/Resolved]
  - Head titubation [Recovered/Resolved]
  - Tremor [Recovered/Resolved]
  - Protrusion tongue [Recovered/Resolved]
  - Lip disorder [Recovered/Resolved]
  - Tongue disorder [Recovered/Resolved]
  - Pain [Recovered/Resolved]
  - Abdominal discomfort [Recovered/Resolved]
  - Hyperventilation [Recovered/Resolved]
  - Anxiety [Recovered/Resolved]
  - Phrenic nerve paralysis [Unknown]
